FAERS Safety Report 9916919 (Version 3)
Quarter: 2014Q3

REPORT INFORMATION
  Report Type: Spontaneous
  Country: US (occurrence: US)
  Receive Date: 20140221
  Receipt Date: 20140729
  Transmission Date: 20150326
  Serious: Yes (Congenital Anomaly, Other)
  Sender: FDA-Public Use
  Company Number: US-PFIZER INC-2014049212

PATIENT
  Sex: Male

DRUGS (8)
  1. REGLAN [Concomitant]
     Active Substance: METOCLOPRAMIDE HYDROCHLORIDE
     Dosage: UNK
     Route: 064
  2. ROBITUSSIN-DM [Concomitant]
     Dosage: UNK
     Route: 064
  3. PROMETHAZINE [Concomitant]
     Active Substance: PROMETHAZINE\PROMETHAZINE HYDROCHLORIDE
     Dosage: UNK
     Route: 064
  4. PRENATAL VITAMINS [Concomitant]
     Active Substance: VITAMINS
     Dosage: UNK
     Route: 064
  5. GUAIFENESIN. [Concomitant]
     Active Substance: GUAIFENESIN
     Dosage: UNK
     Route: 064
  6. CLARITIN [Concomitant]
     Active Substance: LORATADINE
     Dosage: UNK
     Route: 064
  7. ZOLOFT [Suspect]
     Active Substance: SERTRALINE HYDROCHLORIDE
     Dosage: 100 MG, UNK
     Route: 064
     Dates: start: 20050505
  8. NASONEX [Concomitant]
     Active Substance: MOMETASONE FUROATE
     Dosage: UNK
     Route: 064

REACTIONS (16)
  - Intraventricular haemorrhage neonatal [Unknown]
  - Quadriplegia [Unknown]
  - Atrial septal defect [Unknown]
  - Developmental delay [Unknown]
  - Premature baby [Unknown]
  - Attention deficit/hyperactivity disorder [Unknown]
  - Convulsion neonatal [Unknown]
  - Congenital scoliosis [Unknown]
  - Ventricular septal defect [Unknown]
  - Cerebral palsy [Unknown]
  - Congenital hydrocephalus [Unknown]
  - Mental retardation [Unknown]
  - Abnormal behaviour [Unknown]
  - Maternal exposure during pregnancy [Unknown]
  - Muscle spasticity [Unknown]
  - Cognitive disorder [Unknown]

NARRATIVE: CASE EVENT DATE: 20050710
